FAERS Safety Report 5452586-6 (Version None)
Quarter: 2007Q3

REPORT INFORMATION
  Report Type: 
  Country: None (occurrence: None)
  Receive Date: 20070914
  Receipt Date: 20070905
  Transmission Date: 20080115
  Serious: Yes (Hospitalization)
  Sender: FDA-Public Use
  Company Number: JP-NOVOPROD-261401

PATIENT
  Age: 58 Year
  Sex: Female
  Weight: 61 kg

DRUGS (4)
  1. NOVORAPID 30 MIX CHU FLEXPEN [Suspect]
     Indication: INSULIN-REQUIRING TYPE II DIABETES MELLITUS
     Route: 058
  2. MELBIN                             /00082702/ [Suspect]
  3. STARSIS [Suspect]
     Dates: end: 20061001
  4. NOVORAPID CHU FLEXPEN [Concomitant]
     Route: 058
     Dates: start: 20061001

REACTIONS (2)
  - DRUG INEFFECTIVE [None]
  - LATENT AUTOIMMUNE DIABETES IN ADULTS [None]
